FAERS Safety Report 19352970 (Version 1)
Quarter: 2021Q2

REPORT INFORMATION
  Report Type: Spontaneous
  Country: US (occurrence: US)
  Receive Date: 20210531
  Receipt Date: 20210531
  Transmission Date: 20210717
  Serious: Yes (Hospitalization)
  Sender: FDA-Public Use
  Company Number: US-PFIZER INC-2021574836

PATIENT
  Age: 51 Year
  Sex: Female
  Weight: 75.74 kg

DRUGS (8)
  1. GABAPENIN [Concomitant]
     Active Substance: GABAPENTIN
  2. CALCITRATE [Concomitant]
     Active Substance: CALCIUM CITRATE
  3. FASLODEX [Concomitant]
     Active Substance: FULVESTRANT
  4. AMITRIPTYLINE [Concomitant]
     Active Substance: AMITRIPTYLINE
  5. IBRANCE [Suspect]
     Active Substance: PALBOCICLIB
     Indication: NEOPLASM
     Dosage: 100 MG, CYCLIC (21 DAYS ON, 7 DAYS OFF)
     Route: 048
     Dates: start: 20180507
  6. PEPCID AC [Concomitant]
     Active Substance: FAMOTIDINE
  7. DILAUDID [Concomitant]
     Active Substance: HYDROMORPHONE HYDROCHLORIDE
  8. TRAMADOL HCL [Concomitant]
     Active Substance: TRAMADOL HYDROCHLORIDE

REACTIONS (4)
  - Weight decreased [Unknown]
  - Decreased appetite [Unknown]
  - Hepatic failure [Unknown]
  - Hepatic steatosis [Unknown]
